FAERS Safety Report 12958834 (Version 1)
Quarter: 2016Q4

REPORT INFORMATION
  Report Type: Spontaneous
  Country: US (occurrence: US)
  Receive Date: 20161117
  Receipt Date: 20161117
  Transmission Date: 20170207
  Serious: Yes (Hospitalization)
  Sender: FDA-Public Use
  Company Number: None

PATIENT
  Age: 41 Year
  Sex: Female

DRUGS (2)
  1. PHENOL SPRAY [Suspect]
     Active Substance: PHENOL
     Indication: PAIN
     Dosage: 2-3 SPRAYS  EVERY 2 HOURS, PRN
     Route: 048
     Dates: start: 20161006, end: 20161006
  2. NIFEDIPINE. [Concomitant]
     Active Substance: NIFEDIPINE

REACTIONS (5)
  - Drooling [None]
  - Speech disorder [None]
  - White blood cell count increased [None]
  - Oropharyngeal pain [None]
  - Swollen tongue [None]

NARRATIVE: CASE EVENT DATE: 20161006
